FAERS Safety Report 19438140 (Version 1)
Quarter: 2021Q2

REPORT INFORMATION
  Report Type: Spontaneous
  Country: JP (occurrence: JP)
  Receive Date: 20210618
  Receipt Date: 20210618
  Transmission Date: 20210717
  Serious: Yes (Other)
  Sender: FDA-Public Use
  Company Number: JP-SYNEX-T202102323

PATIENT
  Age: 57 Year
  Sex: Male

DRUGS (1)
  1. INOFLO [Suspect]
     Active Substance: NITRIC OXIDE
     Indication: LUNG TRANSPLANT
     Dosage: 20 PPM, FOR 4.5 DAYS (INHALATION)
     Route: 055

REACTIONS (3)
  - Pulmonary oedema [Recovered/Resolved]
  - Product use issue [Unknown]
  - Product use in unapproved indication [Unknown]
